FAERS Safety Report 18657105 (Version 1)
Quarter: 2020Q4

REPORT INFORMATION
  Report Type: Report from Study
  Country: IT (occurrence: IT)
  Receive Date: 20201224
  Receipt Date: 20201224
  Transmission Date: 20210114
  Serious: Yes (Other)
  Sender: FDA-Public Use
  Company Number: IT-BRISTOL-MYERS SQUIBB COMPANY-BMS-2020-108478

PATIENT
  Age: 34 Year
  Sex: Male

DRUGS (1)
  1. DASATINIB. [Suspect]
     Active Substance: DASATINIB
     Indication: CHRONIC MYELOID LEUKAEMIA
     Dosage: 1 DOSAGE FORM, 1 DAY
     Route: 048
     Dates: start: 20200429, end: 20201106

REACTIONS (10)
  - Nausea [Recovering/Resolving]
  - Chest discomfort [Recovering/Resolving]
  - Dyspepsia [Recovering/Resolving]
  - Haematocrit decreased [Recovering/Resolving]
  - Weight increased [Recovering/Resolving]
  - Pleural effusion [Recovering/Resolving]
  - Chest pain [Recovering/Resolving]
  - Blood creatine phosphokinase increased [Recovering/Resolving]
  - Hypothyroidism [Recovering/Resolving]
  - Abdominal pain [Recovering/Resolving]

NARRATIVE: CASE EVENT DATE: 20201106
